FAERS Safety Report 24343249 (Version 1)
Quarter: 2024Q3

REPORT INFORMATION
  Report Type: Spontaneous
  Country: IT (occurrence: IT)
  Receive Date: 20240920
  Receipt Date: 20240920
  Transmission Date: 20241017
  Serious: Yes (Other)
  Sender: BRACCO
  Company Number: None

PATIENT
  Age: 65 Year
  Sex: Male

DRUGS (5)
  1. EPIRUBICIN HYDROCHLORIDE [Suspect]
     Active Substance: EPIRUBICIN HYDROCHLORIDE
     Indication: Transcatheter arterial chemoembolisation
     Dosage: 60 MG, CYCLIC (EPIRUBICIN- LIPIODOL MIXTURE/INJECTED)
     Route: 013
  2. GELFOAM [Suspect]
     Active Substance: DEVICE\GELATIN
     Indication: Embolism
     Dosage: UNK
     Route: 013
  3. IOPAMIDOL [Suspect]
     Active Substance: IOPAMIDOL
     Indication: Hepatic angiogram
     Dosage: 2-4 ML, SINGLE
     Route: 013
  4. LIPIODOL [Suspect]
     Active Substance: ETHIODIZED OIL
     Indication: X-ray
     Dosage: UNK (EPIRUBICIN- LIPIODOL MIXTURE, 5-10 ML LIPIODOL ULTRAFLUID)
     Route: 013
  5. MITOMYCIN [Suspect]
     Active Substance: MITOMYCIN
     Indication: Transcatheter arterial chemoembolisation
     Dosage: 10 MG, CYCLIC (INJECTED USING THE GENERALLY RECOMMENDED DILUTION FOR ENDOVASCULAR INFUSION)
     Route: 013

REACTIONS (3)
  - Hepatic artery occlusion [Unknown]
  - Hepatic artery stenosis [Unknown]
  - Thrombosis [Unknown]
